FAERS Safety Report 9262149 (Version 1)
Quarter: 2013Q2

REPORT INFORMATION
  Report Type: Spontaneous
  Country: US (occurrence: US)
  Receive Date: 20130430
  Receipt Date: 20130430
  Transmission Date: 20140414
  Serious: Yes (Life-Threatening)
  Sender: FDA-Public Use
  Company Number: US-SUN PHARMACEUTICAL INDUSTRIES LTD-2013SUN00045

PATIENT
  Age: 65 Year
  Sex: Female

DRUGS (4)
  1. OCTREOTIDE ACETATE INJECTION 50MCG/ML [Suspect]
     Indication: UPPER GASTROINTESTINAL HAEMORRHAGE
     Dosage: 50 UG/H
     Route: 065
  2. PANTOPRAZOLE [Concomitant]
  3. PROPOFOL [Concomitant]
     Indication: SEDATION
  4. MIDAZOLAM [Concomitant]

REACTIONS (2)
  - Cardiac arrest [Recovered/Resolved]
  - Bradycardia [Recovered/Resolved]
